FAERS Safety Report 10260739 (Version 1)
Quarter: 2014Q2

REPORT INFORMATION
  Report Type: Report from Study
  Country: US (occurrence: US)
  Receive Date: 20140626
  Receipt Date: 20140626
  Transmission Date: 20141212
  Serious: Yes (Other)
  Sender: FDA-Public Use
  Company Number: US-BIOGENIDEC-2014BI060955

PATIENT
  Sex: Female

DRUGS (2)
  1. TYSABRI [Suspect]
     Indication: EXPOSURE VIA FATHER
     Dates: start: 20080305, end: 20090914
  2. TYSABRI [Suspect]
     Indication: EXPOSURE VIA FATHER
     Dates: start: 20130725

REACTIONS (1)
  - Pre-eclampsia [Unknown]
